FAERS Safety Report 5152329-X (Version None)
Quarter: 2006Q4

REPORT INFORMATION
  Report Type: 
  Country: None (occurrence: None)
  Receive Date: 20061116
  Receipt Date: 20061026
  Transmission Date: 20070319
  Serious: Yes (Death, Life-Threatening)
  Sender: FDA-Public Use
  Company Number: GB-AVENTIS-200621393GDDC

PATIENT
  Age: 25 Year
  Sex: Female

DRUGS (6)
  1. ARAVA [Suspect]
     Indication: RHEUMATOID ARTHRITIS
     Dates: start: 20060928, end: 20061023
  2. DICLOFENAC SODIUM [Concomitant]
     Indication: RHEUMATOID ARTHRITIS
     Route: 048
  3. FERROUS SULFATE TAB [Concomitant]
     Route: 048
  4. NAPROXEN [Concomitant]
     Indication: RHEUMATOID ARTHRITIS
     Route: 048
  5. OMEPRAZOLE [Concomitant]
     Indication: PROPHYLAXIS
     Route: 048
  6. FOLIC ACID [Concomitant]
     Route: 048

REACTIONS (2)
  - RESPIRATORY FAILURE [None]
  - TOXIC EPIDERMAL NECROLYSIS [None]
